FAERS Safety Report 15603751 (Version 1)
Quarter: 2018Q4

REPORT INFORMATION
  Report Type: Spontaneous
  Country: US (occurrence: US)
  Receive Date: 20181109
  Receipt Date: 20181109
  Transmission Date: 20190205
  Serious: No
  Sender: FDA-Public Use
  Company Number: US-PFIZER INC-2018461465

PATIENT
  Age: 75 Year
  Sex: Female

DRUGS (3)
  1. SILVADENE [Suspect]
     Active Substance: SILVER SULFADIAZINE
     Dosage: UNK
  2. XEROFORM [Suspect]
     Active Substance: BISMUTH TRIBROMOPHENATE
     Dosage: UNK
  3. PETROLATUM. [Suspect]
     Active Substance: PETROLATUM
     Dosage: UNK

REACTIONS (2)
  - Drug hypersensitivity [Unknown]
  - Rash [Unknown]
